FAERS Safety Report 5151871-5 (Version None)
Quarter: 2006Q4

REPORT INFORMATION
  Report Type: 
  Country: None (occurrence: None)
  Receive Date: 20061109
  Receipt Date: 20061027
  Transmission Date: 20070319
  Serious: Yes (Hospitalization)
  Sender: FDA-Public Use
  Company Number: 2006136193

PATIENT
  Sex: Female

DRUGS (1)
  1. DOSTINEX [Suspect]
     Dosage: (0.5 MG), ORAL
     Route: 048
     Dates: start: 20060801, end: 20060924

REACTIONS (2)
  - HYPOTHALAMO-PITUITARY DISORDERS [None]
  - SURGERY [None]
